FAERS Safety Report 6367930-5 (Version None)
Quarter: 2009Q3

REPORT INFORMATION
  Report Type: 
  Country: None (occurrence: None)
  Receive Date: 20090922
  Receipt Date: 20081212
  Transmission Date: 20100115
  Serious: No
  Sender: FDA-Public Use
  Company Number: A0760356A

PATIENT
  Age: 72 Year
  Sex: Male

DRUGS (4)
  1. SEREVENT [Suspect]
     Indication: EMPHYSEMA
     Dosage: 1PUFF TWICE PER DAY
     Route: 055
     Dates: end: 20080101
  2. PULMICORT-100 [Suspect]
     Route: 055
     Dates: end: 20080101
  3. ASPIRIN [Concomitant]
  4. COMBIVENT [Concomitant]

REACTIONS (5)
  - COUGH [None]
  - DYSPNOEA [None]
  - LUNG INFECTION [None]
  - MALAISE [None]
  - PYREXIA [None]
